FAERS Safety Report 20178369 (Version 1)
Quarter: 2021Q4

REPORT INFORMATION
  Report Type: Spontaneous
  Country: NL (occurrence: NL)
  Receive Date: 20211213
  Receipt Date: 20211213
  Transmission Date: 20220303
  Serious: Yes (Other)
  Sender: FDA-Public Use
  Company Number: NL-LRB-00714324

PATIENT
  Sex: Female
  Weight: 56 kg

DRUGS (4)
  1. SERTRALINE [Suspect]
     Active Substance: SERTRALINE HYDROCHLORIDE
     Indication: Anxiety
     Dosage: 100 MILLIGRAM, DAILY, 1 X PER DAY 1 PIECE
     Route: 065
     Dates: start: 20210701
  2. SERTRALINE [Suspect]
     Active Substance: SERTRALINE HYDROCHLORIDE
     Dosage: 75 MILLIGRAM, DAILY, 1 X PER DAY 1 PIECE
     Route: 065
  3. BUDESONIDE/FORMOTEROL INHP  160/4,5UG/DO / BUFOLER EASYHALER INHPDR... [Concomitant]
     Indication: Product used for unknown indication
     Dosage: INHALATION POWDER, 160/4.5 UG/DOSE (MICROGRAMS PER DOSE), UNK
     Route: 065
  4. OXAZEPAM TABLET  5MG / Brand name not specifiedOXAZEPAM TABLET  5MG [Concomitant]
     Indication: Product used for unknown indication
     Dosage: TABLET, 5 MG (MILLIGRAM), UNK
     Route: 065

REACTIONS (2)
  - Suicidal ideation [Not Recovered/Not Resolved]
  - Autophobia [Not Recovered/Not Resolved]
